FAERS Safety Report 16097149 (Version 1)
Quarter: 2019Q1

REPORT INFORMATION
  Report Type: Spontaneous
  Country: RU (occurrence: RU)
  Receive Date: 20190320
  Receipt Date: 20190320
  Transmission Date: 20190418
  Serious: Yes (Hospitalization)
  Sender: FDA-Public Use
  Company Number: RU-B.I. PHARMACEUTICALS,INC./RIDGEFIELD-2019-BI-011540

PATIENT
  Age: 42 Year
  Sex: Female

DRUGS (2)
  1. MOVALIS [Suspect]
     Active Substance: MELOXICAM
     Indication: NEURITIS
     Route: 030
     Dates: start: 20190312, end: 20190314
  2. OMEZ [Concomitant]
     Active Substance: OMEPRAZOLE
     Indication: CHRONIC GASTRITIS
     Route: 065

REACTIONS (2)
  - Dental cyst [Recovered/Resolved]
  - Pruritus [Recovered/Resolved]

NARRATIVE: CASE EVENT DATE: 20190312
